APPROVED DRUG PRODUCT: PYLERA
Active Ingredient: BISMUTH SUBCITRATE POTASSIUM; METRONIDAZOLE; TETRACYCLINE HYDROCHLORIDE
Strength: 140MG;125MG;125MG
Dosage Form/Route: CAPSULE;ORAL
Application: N050786 | Product #001 | TE Code: AB
Applicant: LABORATOIRES JUVISE PHARMACEUTICALS
Approved: Sep 28, 2006 | RLD: Yes | RS: Yes | Type: RX